FAERS Safety Report 16345414 (Version 4)
Quarter: 2020Q1

REPORT INFORMATION
  Report Type: Spontaneous
  Country: US (occurrence: US)
  Receive Date: 20190523
  Receipt Date: 20200225
  Transmission Date: 20200409
  Serious: Yes (Hospitalization, Other)
  Sender: FDA-Public Use
  Company Number: US-GLAXOSMITHKLINE-US2019AMR090936

PATIENT
  Sex: Female

DRUGS (4)
  1. EPIDIOLEX [Interacting]
     Active Substance: CANNABIDIOL
     Indication: PRODUCT USED FOR UNKNOWN INDICATION
     Dosage: UNK
     Route: 065
  2. LAMICTAL XR [Suspect]
     Active Substance: LAMOTRIGINE
     Indication: SEIZURE
     Dosage: UNK
     Route: 065
  3. LAMICTAL [Interacting]
     Active Substance: LAMOTRIGINE
     Indication: SEIZURE
     Dosage: UNK
     Route: 065
  4. LAMOTRIGINE. [Suspect]
     Active Substance: LAMOTRIGINE
     Indication: SEIZURE
     Dosage: UNK
     Route: 065

REACTIONS (11)
  - Nervousness [Unknown]
  - Product substitution issue [Unknown]
  - Drug interaction [Unknown]
  - Product dispensing error [Unknown]
  - Hospitalisation [Unknown]
  - Seizure [Unknown]
  - Food craving [Unknown]
  - Drug ineffective [Unknown]
  - Hyperacusis [Unknown]
  - Stubbornness [Unknown]
  - Photophobia [Unknown]
